FAERS Safety Report 4548313-7 (Version None)
Quarter: 2005Q1

REPORT INFORMATION
  Report Type: 
  Country: None (occurrence: None)
  Receive Date: 20050110
  Receipt Date: 20041230
  Transmission Date: 20050727
  Serious: Yes (Hospitalization)
  Sender: FDA-Public Use
  Company Number: US-MERCK-0412USA03368

PATIENT
  Age: 62 Year
  Sex: Female
  Weight: 95 kg

DRUGS (2)
  1. VIOXX [Suspect]
     Indication: PAIN
     Route: 048
     Dates: start: 20020101
  2. VIOXX [Suspect]
     Route: 048
     Dates: start: 20030101, end: 20041001

REACTIONS (13)
  - ARRHYTHMIA [None]
  - ATRIAL FIBRILLATION [None]
  - ATRIOVENTRICULAR BLOCK FIRST DEGREE [None]
  - CHEST PAIN [None]
  - DERMATITIS CONTACT [None]
  - DIZZINESS [None]
  - DRUG INEFFECTIVE [None]
  - DRY SOCKET [None]
  - FACIAL PALSY [None]
  - HYPERTENSION [None]
  - OSTEOARTHRITIS [None]
  - TOOTH DISORDER [None]
  - VAGINITIS ATROPHIC [None]
